FAERS Safety Report 6097869-4 (Version None)
Quarter: 2009Q1

REPORT INFORMATION
  Report Type: 
  Country: None (occurrence: None)
  Receive Date: 20090225
  Receipt Date: 20090209
  Transmission Date: 20090719
  Serious: Yes (Other)
  Sender: FDA-Public Use
  Company Number: 2009AL000809

PATIENT
  Age: 73 Year
  Sex: Female

DRUGS (4)
  1. RANITIDINE [Suspect]
     Indication: OESOPHAGEAL ULCER
     Dosage: 150 MG; BID; PO
     Route: 048
  2. BENDROFLUAZIDE [Concomitant]
  3. ASPIRIN [Concomitant]
  4. ATORVASTATIN [Concomitant]

REACTIONS (6)
  - ANOREXIA [None]
  - DYSPEPSIA [None]
  - ERUCTATION [None]
  - MALAISE [None]
  - NO REACTION ON PREVIOUS EXPOSURE TO DRUG [None]
  - PRODUCT QUALITY ISSUE [None]
